FAERS Safety Report 7342664-9 (Version None)
Quarter: 2011Q1

REPORT INFORMATION
  Report Type: 
  Country: None (occurrence: None)
  Receive Date: 20110302
  Receipt Date: 20110217
  Transmission Date: 20110831
  Serious: Yes (Other)
  Sender: FDA-Public Use
  Company Number: 2011AP000292

PATIENT
  Age: 66 Year
  Sex: Female

DRUGS (1)
  1. FLUTICASONE PROPIONATE [Suspect]
     Indication: PRODUCT USED FOR UNKNOWN INDICATION
     Dosage: ;NAS
     Route: 045
     Dates: start: 20100501, end: 20110125

REACTIONS (4)
  - PHOTOPSIA [None]
  - VISION BLURRED [None]
  - VITREOUS FLOATERS [None]
  - BALANCE DISORDER [None]
